FAERS Safety Report 5494691-4 (Version None)
Quarter: 2007Q4

REPORT INFORMATION
  Report Type: 
  Country: None (occurrence: None)
  Receive Date: 20071024
  Receipt Date: 20071012
  Transmission Date: 20080405
  Serious: Yes (Hospitalization)
  Sender: FDA-Public Use
  Company Number: US-ROCHE-524928

PATIENT
  Age: 65 Year
  Sex: Female
  Weight: 59 kg

DRUGS (9)
  1. CAPECITABINE [Suspect]
     Dosage: 1445MG TAKEN TWICE DAILY ON DAYS 1 TO 14 ON A ONE WEEK OFF SCHEDULE.
     Route: 065
     Dates: start: 20070927, end: 20071005
  2. CETUXIMAB [Suspect]
     Dosage: DOSE REPORTED AS: '680MG X 1, 425MG EVERY WEEK'.
     Route: 042
     Dates: start: 20070927
  3. OXALIPLATIN [Suspect]
     Route: 042
     Dates: start: 20070410, end: 20071004
  4. OXYCODONE HCL [Concomitant]
     Indication: DRUG USE FOR UNKNOWN INDICATION
     Dosage: DOSING FREQUENCY REPORTED AS 'EVERY FOUR HOURS WHEN REQUIRED'.
     Route: 065
  5. UNSPECIFIED DRUG [Concomitant]
     Indication: DRUG USE FOR UNKNOWN INDICATION
     Dosage: DRUG NAME REPORTED AS 'TRIAMTERENE/HCTZ'. DOSAGE REPORTED AS '25/37 5 Q DAY'.
     Route: 065
  6. ATENOLOL [Concomitant]
  7. COMPAZINE [Concomitant]
     Dosage: DOSAGE FREQUENCY REPORTED AS '10MG Q 6PRN'.
  8. NEXIUM [Concomitant]
  9. COLACE [Concomitant]
     Indication: DRUG USE FOR UNKNOWN INDICATION

REACTIONS (15)
  - ASTHENIA [None]
  - DISEASE PROGRESSION [None]
  - DYSPNOEA [None]
  - EMPYEMA [None]
  - FATIGUE [None]
  - HYPOXIA [None]
  - KETOSIS [None]
  - MALIGNANT PLEURAL EFFUSION [None]
  - MENTAL STATUS CHANGES [None]
  - METABOLIC ACIDOSIS [None]
  - MUSCULAR WEAKNESS [None]
  - NAUSEA [None]
  - ORAL INTAKE REDUCED [None]
  - PULMONARY MASS [None]
  - VOMITING [None]
